FAERS Safety Report 9276375 (Version 1)
Quarter: 2012Q4

REPORT INFORMATION
  Report Type: Spontaneous
  Country: US (occurrence: None)
  Receive Date: 20121109
  Receipt Date: 20121109
  Transmission Date: 20130627
  Serious: Yes (Death)
  Sender: FDA-Public Use
  Company Number: 2012S1000559

PATIENT

DRUGS (2)
  1. CUBICIN (DAPTOMYCIN) [Suspect]
     Indication: METHICILLIN-RESISTANT STAPHYLOCOCCAL AUREUS INFECTION
  2. VANCOMYCIN [Concomitant]

REACTIONS (5)
  - Respiratory failure [None]
  - Acidosis [None]
  - Fungal test positive [None]
  - Enterococcus test positive [None]
  - Clostridium difficile infection [None]
